FAERS Safety Report 20499542 (Version 2)
Quarter: 2022Q1

REPORT INFORMATION
  Report Type: Report from Study
  Country: US (occurrence: US)
  Receive Date: 20220222
  Receipt Date: 20220318
  Transmission Date: 20220424
  Serious: Yes (Hospitalization, Other)
  Sender: FDA-Public Use
  Company Number: US-GILEAD-2022-0570613

PATIENT
  Age: 17 Year
  Sex: Female

DRUGS (27)
  1. AZTREONAM LYSINE [Suspect]
     Active Substance: AZTREONAM LYSINE
     Indication: Cystic fibrosis lung
     Dosage: 75 MG, TID, (4 HOURS APART) FOR 28 DAYS ON THEN 28 DAYS OFF
     Route: 055
     Dates: start: 202111
  2. AZTREONAM LYSINE [Suspect]
     Active Substance: AZTREONAM LYSINE
     Indication: Cystic fibrosis
  3. CREON [Concomitant]
     Active Substance: PANCRELIPASE AMYLASE\PANCRELIPASE LIPASE\PANCRELIPASE PROTEASE
     Dosage: CREON 12K-38K-60 CAPSULE DR
  4. DYMISTA [Concomitant]
     Active Substance: AZELASTINE HYDROCHLORIDE\FLUTICASONE PROPIONATE
     Dosage: DYMISTA 137-50 MCG SPRAY/PUMP
  5. PREDNISONE [Concomitant]
     Active Substance: PREDNISONE
     Dosage: PREDNISONE 10 MG TABLET
  6. TOBRAMYCIN [Concomitant]
     Active Substance: TOBRAMYCIN
     Dosage: TOBRAMYCIN 300 MG/5ML AMPUL-NEB
  7. SYMBICORT [Concomitant]
     Active Substance: BUDESONIDE\FORMOTEROL FUMARATE DIHYDRATE
     Dosage: SYMBICORT 160-4.5MCG HFA AER AD
  8. SODIUM CHLORIDE [Concomitant]
     Active Substance: SODIUM CHLORIDE
  9. MONTELUKAST SODIUM [Concomitant]
     Active Substance: MONTELUKAST SODIUM
     Dosage: MONTELUKAST SODIUM 10 MG TABLET
  10. MAGNESIUM [Concomitant]
     Active Substance: MAGNESIUM
     Dosage: MAGNESIUM 200 MG TABLET
  11. IRON [Concomitant]
     Active Substance: IRON
     Dosage: IRON 159(45)MG TABLET ER
  12. ALBUTEROL SULFATE [Concomitant]
     Active Substance: ALBUTEROL SULFATE
  13. PULMOZYME [Concomitant]
     Active Substance: DORNASE ALFA
     Dosage: PULMOZYME 1 MG/ML SOLUTION
  14. ZYRTEC [Concomitant]
     Active Substance: CETIRIZINE HYDROCHLORIDE
  15. LOESTRIN NOS [Concomitant]
     Active Substance: ETHINYL ESTRADIOL\NORETHINDRONE ACETATE
     Dosage: LOESTRIN 1MG-20MCG TABLET
  16. OMEPRAZOLE [Concomitant]
     Active Substance: OMEPRAZOLE
     Dosage: OMEPRAZOLE 20 MG CAPSULE DR
  17. VITAMINS [Concomitant]
     Active Substance: VITAMINS
  18. VITAMIN D2 [Concomitant]
     Active Substance: ERGOCALCIFEROL
  19. PROAIR HFA [Concomitant]
     Active Substance: ALBUTEROL SULFATE
  20. AZELASTINE [Concomitant]
     Active Substance: AZELASTINE
  21. URSODIOL [Concomitant]
     Active Substance: URSODIOL
     Dosage: URSODIOL 250 MG TABLET
  22. ONDANSETRON [Concomitant]
     Active Substance: ONDANSETRON
     Dosage: ONDANSETRON HCL 4 MG TABLET
  23. MELATONIN [Concomitant]
     Active Substance: MELATONIN
     Dosage: MELATONIN 10 MG TABLET
  24. ZYRTEC [Concomitant]
     Active Substance: CETIRIZINE HYDROCHLORIDE
     Dosage: ZYRTEC 10 MG TABLET
  25. PROAIR HFA [Concomitant]
     Active Substance: ALBUTEROL SULFATE
     Dosage: PROAIR HFA 90 MCG HFA AER AD
  26. AZELASTINE HYDROCHLORIDE [Concomitant]
     Active Substance: AZELASTINE HYDROCHLORIDE
     Dosage: AZELASTINE HCL 137 MCG SPRAY/PUMP
  27. TRIKAFTA [Concomitant]
     Active Substance: ELEXACAFTOR\IVACAFTOR\TEZACAFTOR
     Dosage: TRIKAFTA 100-50-75 TABLET SEQ

REACTIONS (3)
  - Asthma [Not Recovered/Not Resolved]
  - Surgery [Not Recovered/Not Resolved]
  - Cystic fibrosis [Unknown]

NARRATIVE: CASE EVENT DATE: 20220201
